FAERS Safety Report 4398624-3 (Version None)
Quarter: 2004Q3

REPORT INFORMATION
  Report Type: 
  Country: None (occurrence: None)
  Receive Date: 20040712
  Receipt Date: 20040628
  Transmission Date: 20050211
  Serious: Yes (Death)
  Sender: FDA-Public Use
  Company Number: FR-JNJFOC-20040607432

PATIENT
  Age: 75 Year
  Sex: Male

DRUGS (14)
  1. SPORANOX [Suspect]
     Indication: ACUTE MYELOID LEUKAEMIA
     Dosage: ORAL
     Route: 048
     Dates: start: 20030101, end: 20030101
  2. SPORANOX [Suspect]
     Indication: ACUTE MYELOID LEUKAEMIA
     Dosage: ORAL
     Route: 048
     Dates: start: 20030601, end: 20030601
  3. SPORANOX [Suspect]
     Indication: ACUTE MYELOID LEUKAEMIA
     Dosage: ORAL
     Route: 048
     Dates: start: 20031202, end: 20031202
  4. SPORANOX [Suspect]
     Indication: ACUTE MYELOID LEUKAEMIA
     Dosage: ORAL
     Route: 048
     Dates: start: 20030215, end: 20031215
  5. CYTARABINE [Suspect]
     Indication: ACUTE MYELOID LEUKAEMIA
     Dosage: ORAL
     Route: 048
     Dates: start: 20020501, end: 20020501
  6. ZAVEDOS (IDARUBICIN HYDROCHLORIDE) [Suspect]
     Indication: ACUTE MYELOID LEUKAEMIA
     Dosage: ORAL
     Route: 048
     Dates: start: 20020501, end: 20020501
  7. ZAVEDOS (IDARUBICIN HYDROCHLORIDE) [Suspect]
     Indication: ACUTE MYELOID LEUKAEMIA
     Dosage: ORAL
     Route: 048
     Dates: start: 20030101, end: 20030101
  8. ZAVEDOS (IDARUBICIN HYDROCHLORIDE) [Suspect]
     Indication: ACUTE MYELOID LEUKAEMIA
     Dosage: ORAL
     Route: 048
     Dates: start: 20030601, end: 20030601
  9. ZAVEDOS (IDARUBICIN HYDROCHLORIDE) [Suspect]
     Indication: ACUTE MYELOID LEUKAEMIA
     Dosage: ORAL
     Route: 048
     Dates: start: 20031202, end: 20031202
  10. BELUSTINE (LOMUSTINE) [Suspect]
     Indication: ACUTE MYELOID LEUKAEMIA
     Dosage: ORAL
     Route: 048
     Dates: start: 20020501, end: 20020501
  11. BELUSTINE (LOMUSTINE) [Suspect]
     Indication: ACUTE MYELOID LEUKAEMIA
     Dosage: ORAL
     Route: 048
     Dates: start: 20030101, end: 20030101
  12. BELUSTINE (LOMUSTINE) [Suspect]
     Indication: ACUTE MYELOID LEUKAEMIA
     Dosage: ORAL
     Route: 048
     Dates: start: 20030601, end: 20030601
  13. BELUSTINE (LOMUSTINE) [Suspect]
     Indication: ACUTE MYELOID LEUKAEMIA
     Dosage: ORAL
     Route: 048
     Dates: start: 20031202, end: 20031202
  14. NILEVAR (NORETHANDROLONE) [Suspect]
     Dosage: ORAL
     Route: 048
     Dates: start: 20030215, end: 20031215

REACTIONS (7)
  - AGRANULOCYTOSIS [None]
  - CYTOLYTIC HEPATITIS [None]
  - GENERAL PHYSICAL HEALTH DETERIORATION [None]
  - HEPATOTOXICITY [None]
  - INSOMNIA [None]
  - PANCYTOPENIA [None]
  - TUMOUR LYSIS SYNDROME [None]
